FAERS Safety Report 24435600 (Version 2)
Quarter: 2024Q4

REPORT INFORMATION
  Report Type: Spontaneous
  Country: US (occurrence: US)
  Receive Date: 20241015
  Receipt Date: 20241016
  Transmission Date: 20250115
  Serious: Yes (Other)
  Sender: GLAXOSMITHKLINE
  Company Number: US-GSKCCFUS-Case-02119756_AE-116921

PATIENT
  Sex: Female

DRUGS (1)
  1. TRELEGY ELLIPTA [Suspect]
     Active Substance: FLUTICASONE FUROATE\UMECLIDINIUM BROMIDE\VILANTEROL TRIFENATATE
     Indication: Emphysema
     Dosage: UNK UNK, QD 100/62.5/25 MCG

REACTIONS (6)
  - Urinary retention [Unknown]
  - Peripheral coldness [Unknown]
  - Urinary tract infection [Unknown]
  - Dysphonia [Unknown]
  - Rosacea [Unknown]
  - Disease recurrence [Unknown]
